FAERS Safety Report 23484037 (Version 1)
Quarter: 2024Q1

REPORT INFORMATION
  Report Type: Spontaneous
  Country: US (occurrence: US)
  Receive Date: 20240205
  Receipt Date: 20240205
  Transmission Date: 20240410
  Serious: No
  Sender: FDA-Public Use
  Company Number: US-Merck Healthcare KGaA-2024005601

PATIENT
  Sex: Female

DRUGS (4)
  1. MAVENCLAD [Suspect]
     Active Substance: CLADRIBINE
     Indication: Multiple sclerosis
     Dosage: FIRST YEAR FIRST MONTH: TWO TABLETS ON DAYS 1  AND 2 AND ONE TABLET ON DAYS 3 TO 5.
     Route: 048
     Dates: start: 20220902
  2. MAVENCLAD [Suspect]
     Active Substance: CLADRIBINE
     Dosage: FIRST YEAR SECOND MONTH: TWO TABLETS ON DAYS 1  AND 2 AND ONE TABLET ON DAYS 3 TO 5.
     Route: 048
     Dates: start: 20221003
  3. MAVENCLAD [Suspect]
     Active Substance: CLADRIBINE
     Dosage: SECOND YEAR FIRST WEEK: TWO TABLETS ON DAYS 1  AND 2 AND ONE TABLET ON DAYS 3 TO 5.
     Route: 048
     Dates: start: 20231229, end: 20240102
  4. MAVENCLAD [Suspect]
     Active Substance: CLADRIBINE
     Dosage: SECOND YEAR SECOND MONTH: TWO TABLETS ON DAYS 1  AND 2 AND ONE TABLET ON DAYS 3 TO 5.
     Route: 048
     Dates: start: 20240125, end: 20240129

REACTIONS (1)
  - Hypoaesthesia [Unknown]
